FAERS Safety Report 20599535 (Version 1)
Quarter: 2022Q1

REPORT INFORMATION
  Report Type: Spontaneous
  Country: IN (occurrence: IN)
  Receive Date: 20220316
  Receipt Date: 20220316
  Transmission Date: 20220423
  Serious: Yes (Other)
  Sender: FDA-Public Use
  Company Number: IN-STRIDES ARCOLAB LIMITED-2022SP002564

PATIENT

DRUGS (5)
  1. ETOPOSIDE [Suspect]
     Active Substance: ETOPOSIDE
     Indication: High-grade B-cell lymphoma
     Dosage: UNK, CYCLICAL (EVERY 21 DAYS FOR SIX CYCLES, AS A PART OF DAEPOCH REGIMEN)
     Route: 065
  2. PREDNISONE [Suspect]
     Active Substance: PREDNISONE
     Indication: High-grade B-cell lymphoma
     Dosage: UNK, CYCLICAL (EVERY 21 DAYS FOR SIX CYCLES, AS A PART OF DAEPOCH REGIMEN)
     Route: 065
  3. VINCRISTINE [Suspect]
     Active Substance: VINCRISTINE
     Indication: High-grade B-cell lymphoma
     Dosage: UNK, CYCLICAL (EVERY 21 DAYS FOR SIX CYCLES, AS A PART OF DAEPOCH REGIMEN)
     Route: 065
  4. CYCLOPHOSPHAMIDE [Suspect]
     Active Substance: CYCLOPHOSPHAMIDE
     Indication: High-grade B-cell lymphoma
     Dosage: UNK, CYCLICAL (EVERY 21 DAYS FOR SIX CYCLES, AS A PART OF DAEPOCH REGIMEN)
     Route: 065
  5. DOXORUBICIN [Suspect]
     Active Substance: DOXORUBICIN
     Indication: High-grade B-cell lymphoma
     Dosage: UNK, CYCLICAL (EVERY 21 DAYS FOR SIX CYCLES, AS A PART OF DAEPOCH REGIMEN)
     Route: 065

REACTIONS (2)
  - Cardiac disorder [Unknown]
  - Off label use [Unknown]
